FAERS Safety Report 4514457-9 (Version None)
Quarter: 2004Q4

REPORT INFORMATION
  Report Type: 
  Country: None (occurrence: None)
  Receive Date: 20040928
  Receipt Date: 20040715
  Transmission Date: 20050328
  Serious: No
  Sender: FDA-Public Use
  Company Number: 04P-163-0267366-00

PATIENT
  Age: 38 Year
  Sex: Male
  Weight: 99.3377 kg

DRUGS (3)
  1. HUMIRA [Suspect]
     Indication: RHEUMATOID ARTHRITIS
     Dosage: 40 MG, 1 IN 2 WK, SUBCUTANEOUS
     Route: 058
     Dates: start: 20040705
  2. OXYCONTIN [Concomitant]
  3. CRESTOR [Concomitant]

REACTIONS (3)
  - EXPOSURE TO TOXIC AGENT [None]
  - PRURITUS [None]
  - RASH [None]
